FAERS Safety Report 24917673 (Version 2)
Quarter: 2025Q1

REPORT INFORMATION
  Report Type: Spontaneous
  Country: US (occurrence: US)
  Receive Date: 20250203
  Receipt Date: 20250222
  Transmission Date: 20250408
  Serious: No
  Sender: SANOFI AVENTIS
  Company Number: US-SANOFI-02392694

PATIENT
  Age: 76 Year
  Sex: Male

DRUGS (2)
  1. DUPIXENT [Suspect]
     Active Substance: DUPILUMAB
     Indication: Erythrodermic psoriasis
     Route: 065
     Dates: start: 20241207
  2. TECVAYLI [Concomitant]
     Active Substance: TECLISTAMAB-CQYV

REACTIONS (10)
  - Fatigue [Unknown]
  - Upper limb fracture [Unknown]
  - Dizziness [Unknown]
  - Gastritis [Unknown]
  - Insomnia [Unknown]
  - Toothache [Unknown]
  - Erythema [Unknown]
  - Arthralgia [Unknown]
  - Rash [Unknown]
  - Off label use [Unknown]
